FAERS Safety Report 13264260 (Version 1)
Quarter: 2017Q1

REPORT INFORMATION
  Report Type: Spontaneous
  Country: MX (occurrence: MX)
  Receive Date: 20170223
  Receipt Date: 20170223
  Transmission Date: 20170428
  Serious: Yes (Other)
  Sender: FDA-Public Use
  Company Number: MX-PFIZER INC-2017076622

PATIENT
  Age: 47 Year
  Sex: Male

DRUGS (2)
  1. DETRUSITOL [Suspect]
     Active Substance: TOLTERODINE TARTRATE
     Dosage: 2 MG, UNKNOWN FREQUENCY
  2. NEURONTIN [Suspect]
     Active Substance: GABAPENTIN
     Dosage: 600 MG, UNKNOWN FREQUENCY

REACTIONS (2)
  - Nerve injury [Not Recovered/Not Resolved]
  - Road traffic accident [Not Recovered/Not Resolved]
